FAERS Safety Report 4692318-2 (Version None)
Quarter: 2005Q2

REPORT INFORMATION
  Report Type: 
  Country: None (occurrence: None)
  Receive Date: 20050614
  Receipt Date: 20050531
  Transmission Date: 20051028
  Serious: Yes (Hospitalization)
  Sender: FDA-Public Use
  Company Number: 11407

PATIENT
  Age: 71 Year
  Sex: Male

DRUGS (3)
  1. PACLITAXEL [Suspect]
  2. CARBOPLATIN [Suspect]
  3. DMXAA [Suspect]
     Dosage: IV
     Route: 042
     Dates: start: 20050106

REACTIONS (2)
  - DISEASE PROGRESSION [None]
  - URINARY TRACT INFECTION [None]
